FAERS Safety Report 17010385 (Version 2)
Quarter: 2019Q4

REPORT INFORMATION
  Report Type: Spontaneous
  Country: FR (occurrence: FR)
  Receive Date: 20191108
  Receipt Date: 20191227
  Transmission Date: 20200122
  Serious: Yes (Death, Hospitalization, Other)
  Sender: FDA-Public Use
  Company Number: FR-MYLANLABS-2019M1106462

PATIENT
  Age: 66 Year
  Sex: Male
  Weight: 79 kg

DRUGS (11)
  1. FUROSEMIDE. [Concomitant]
     Active Substance: FUROSEMIDE
     Indication: PRODUCT USED FOR UNKNOWN INDICATION
     Dosage: 3 DOSAGE FORM, QD (1 DF, TID)
  2. CERTICAN [Concomitant]
     Active Substance: EVEROLIMUS
     Indication: PRODUCT USED FOR UNKNOWN INDICATION
     Dosage: 2 GRAM, QD (1 G, BID)
     Route: 065
     Dates: start: 20181231
  3. ESIDREX [Concomitant]
     Active Substance: HYDROCHLOROTHIAZIDE
     Indication: PRODUCT USED FOR UNKNOWN INDICATION
     Dosage: 12.5 MG, QD
  4. LOXEN L P [Concomitant]
     Active Substance: NICARDIPINE HYDROCHLORIDE
     Indication: PRODUCT USED FOR UNKNOWN INDICATION
     Dosage: 1 DF, QD
     Route: 065
  5. DIFFU K [Concomitant]
     Active Substance: POTASSIUM CHLORIDE
     Indication: PRODUCT USED FOR UNKNOWN INDICATION
     Dosage: 9 DOSAGE FORM, QD (3 DF, TID)
  6. EUPRESSYL                          /00631801/ [Concomitant]
     Active Substance: URAPIDIL
     Indication: PRODUCT USED FOR UNKNOWN INDICATION
     Dosage: 120 MG, QD (60 MG, BID)
  7. AUGMENTIN [Suspect]
     Active Substance: AMOXICILLIN\CLAVULANATE POTASSIUM
     Indication: PRODUCT USED FOR UNKNOWN INDICATION
     Dosage: UNK
  8. AMOXICILLINE/ACIDE CLAVULANIQUE [Suspect]
     Active Substance: AMOXICILLIN\CLAVULANIC ACID
     Indication: ERYSIPELAS
     Dosage: 4 DOSAGE FORM, QD (2 DF, BID)
     Route: 048
     Dates: start: 20181114, end: 20181124
  9. AMOXICILLINE/ACIDE CLAVULANIQUE [Suspect]
     Active Substance: AMOXICILLIN\CLAVULANIC ACID
     Dosage: UNK
     Route: 048
  10. PROGRAF [Concomitant]
     Active Substance: TACROLIMUS
     Indication: PROPHYLAXIS AGAINST TRANSPLANT REJECTION
     Dosage: 1 MILLIGRAM, QD (0.5 MG, BID)
     Route: 065
     Dates: start: 20181231
  11. NOREPINEPHRINE. [Suspect]
     Active Substance: NOREPINEPHRINE
     Indication: PRODUCT USED FOR UNKNOWN INDICATION
     Dosage: UNK
     Route: 065

REACTIONS (26)
  - Aortic bruit [Unknown]
  - General physical health deterioration [Unknown]
  - Septic shock [Fatal]
  - Anuria [Unknown]
  - Hepatic lesion [Unknown]
  - Hepatotoxicity [Fatal]
  - Jaundice cholestatic [Unknown]
  - Pancytopenia [Recovered/Resolved]
  - Breath sounds abnormal [Unknown]
  - Ascites [Unknown]
  - Portal fibrosis [Unknown]
  - Jaundice [Unknown]
  - Diarrhoea [Unknown]
  - Hypothermia [Unknown]
  - Condition aggravated [Fatal]
  - Clostridium difficile infection [Unknown]
  - Polyuria [Unknown]
  - Pneumonitis [Unknown]
  - Drug-induced liver injury [Fatal]
  - Encephalopathy [Recovered/Resolved]
  - Haemodynamic instability [Unknown]
  - Oedema peripheral [Unknown]
  - Renal tubular necrosis [Unknown]
  - Acute kidney injury [Unknown]
  - Biliary tract disorder [Unknown]
  - Cholangitis [Unknown]

NARRATIVE: CASE EVENT DATE: 2018
